FAERS Safety Report 25944350 (Version 1)
Quarter: 2025Q4

REPORT INFORMATION
  Report Type: Spontaneous
  Country: US (occurrence: US)
  Receive Date: 20251021
  Receipt Date: 20251021
  Transmission Date: 20260118
  Serious: Yes (Other)
  Sender: AMGEN
  Company Number: US-AMGEN-USASP2025204376

PATIENT
  Age: 4 Decade
  Sex: Male

DRUGS (5)
  1. BEVACIZUMAB [Suspect]
     Active Substance: BEVACIZUMAB
     Indication: Retinal vein occlusion
     Dosage: 1.25 MILLIGRAM/0.05CC, QMO, INJECTION
  2. TIMOLOL [Concomitant]
     Active Substance: TIMOLOL
     Indication: Retinal vein occlusion
     Dosage: 0.5%
  3. BRIMONIDINE [Concomitant]
     Active Substance: BRIMONIDINE TARTRATE
     Indication: Retinal vein occlusion
  4. DORZOLAMIDE [Concomitant]
     Active Substance: DORZOLAMIDE
     Indication: Retinal vein occlusion
     Dosage: 2%
  5. ACETAZOLAMIDE [Concomitant]
     Active Substance: ACETAZOLAMIDE
     Indication: Retinal vein occlusion
     Dosage: 250 MILLIGRAM, QID

REACTIONS (6)
  - Vitreous haemorrhage [Recovered/Resolved]
  - Retinal oedema [Recovered/Resolved]
  - Retinal degeneration [Recovered/Resolved]
  - Hyperlipidaemia [Unknown]
  - Drug effective for unapproved indication [Unknown]
  - Off label use [Unknown]
